FAERS Safety Report 6329285-1 (Version None)
Quarter: 2009Q3

REPORT INFORMATION
  Report Type: 
  Country: None (occurrence: None)
  Receive Date: 20090824
  Receipt Date: 20090824
  Transmission Date: 20100115
  Serious: Yes (Life-Threatening, Other)
  Sender: FDA-Public Use
  Company Number: None

PATIENT
  Age: 52 Year
  Sex: Male
  Weight: 81.6475 kg

DRUGS (3)
  1. CELEBREX [Suspect]
     Indication: BACK PAIN
     Dosage: 200 MG ONCE A DAY PO
     Route: 048
     Dates: start: 20090510, end: 20090710
  2. CELEBREX [Suspect]
     Indication: NEUROLOGICAL SYMPTOM
     Dosage: 200 MG ONCE A DAY PO
     Route: 048
     Dates: start: 20090510, end: 20090710
  3. CELEBREX [Suspect]
     Indication: PAIN IN EXTREMITY
     Dosage: 200 MG ONCE A DAY PO
     Route: 048
     Dates: start: 20090510, end: 20090710

REACTIONS (13)
  - ABDOMINAL DISCOMFORT [None]
  - ABDOMINAL PAIN UPPER [None]
  - ASTHENIA [None]
  - ASTHMA [None]
  - CHEST PAIN [None]
  - CONSTIPATION [None]
  - FAECES DISCOLOURED [None]
  - FATIGUE [None]
  - HAEMATEMESIS [None]
  - MUSCLE ATROPHY [None]
  - NO THERAPEUTIC RESPONSE [None]
  - PALLOR [None]
  - WEIGHT DECREASED [None]
